FAERS Safety Report 6979675-9 (Version None)
Quarter: 2010Q3

REPORT INFORMATION
  Report Type: 
  Country: None (occurrence: None)
  Receive Date: 20100908
  Receipt Date: 20100903
  Transmission Date: 20110219
  Serious: Yes (Death)
  Sender: FDA-Public Use
  Company Number: 20100019USST

PATIENT
  Age: 56 Year
  Sex: Male

DRUGS (7)
  1. PROCARBAZINE HYDROCHLORIDE [Suspect]
     Indication: HODGKIN'S DISEASE
     Dosage: 100 MG/M2, 1 WEEK, PO
     Route: 048
     Dates: start: 20100607, end: 20100613
  2. CYCLOPHOSPHAMIDE [Suspect]
     Indication: HODGKIN'S DISEASE
     Dosage: 800 MG/M2
     Dates: start: 20100607
  3. DOXORUBICIN HCL [Suspect]
     Indication: HODGKIN'S DISEASE
     Dosage: 35 MG/M2
     Dates: start: 20100607
  4. ETOPOSIDE [Suspect]
     Indication: HODGKIN'S DISEASE
     Dosage: 125 MG/M2
     Dates: start: 20100607, end: 20100709
  5. PREDNISONE [Suspect]
     Indication: HODGKIN'S DISEASE
     Dosage: 40 MG/M2
     Dates: start: 20100607, end: 20100615
  6. BLEOMYCIN SULFATE [Suspect]
     Indication: HODGKIN'S DISEASE
     Dosage: 10 MG/M2
     Dates: end: 20100317
  7. VINCRISTINE [Suspect]
     Indication: HODGKIN'S DISEASE
     Dosage: 1400 ?G
     Dates: start: 20100614

REACTIONS (4)
  - CEREBRAL INFARCTION [None]
  - RESPIRATORY FAILURE [None]
  - THERAPEUTIC AGENT TOXICITY [None]
  - THROMBOCYTOPENIA [None]
